FAERS Safety Report 14614952 (Version 1)
Quarter: 2018Q1

REPORT INFORMATION
  Report Type: Spontaneous
  Country: IT (occurrence: IT)
  Receive Date: 20180308
  Receipt Date: 20180308
  Transmission Date: 20180509
  Serious: Yes (Other)
  Sender: FDA-Public Use
  Company Number: IT-GILEAD-2018-0324520

PATIENT
  Age: 42 Year
  Sex: Female

DRUGS (3)
  1. TIVICAY [Concomitant]
     Active Substance: DOLUTEGRAVIR SODIUM
     Indication: ANTIRETROVIRAL THERAPY
     Dosage: 50 MG, QD
     Route: 048
     Dates: start: 20180112, end: 20180202
  2. DESCOVY [Suspect]
     Active Substance: EMTRICITABINE\TENOFOVIR ALAFENAMIDE FUMARATE
     Indication: ANTIRETROVIRAL THERAPY
     Dosage: 1 DF, UNK
     Route: 048
  3. ISENTRESS [Concomitant]
     Active Substance: RALTEGRAVIR POTASSIUM
     Indication: ANTIRETROVIRAL THERAPY
     Dosage: 800 MG, QD
     Route: 048
     Dates: start: 20180202, end: 20180224

REACTIONS (1)
  - Renal failure [Unknown]

NARRATIVE: CASE EVENT DATE: 20180224
